FAERS Safety Report 7536279-7 (Version None)
Quarter: 2011Q2

REPORT INFORMATION
  Report Type: 
  Country: None (occurrence: None)
  Receive Date: 20110608
  Receipt Date: 20110608
  Transmission Date: 20111010
  Serious: Yes (Other)
  Sender: FDA-Public Use
  Company Number: None

PATIENT
  Sex: Male
  Weight: 88.4514 kg

DRUGS (2)
  1. VELCADE [Suspect]
     Indication: MULTIPLE MYELOMA
     Dosage: 2.7 MG DAY 1, 4, 8, 11 SQ 1 DOSE, DAY 1 OF REGIMEN 1 DOSE, DAY 4 OF REGIMEN
     Route: 058
     Dates: start: 20110606, end: 20110606
  2. VELCADE [Suspect]
     Indication: MULTIPLE MYELOMA
     Dosage: 2.7 MG DAY 1, 4, 8, 11 SQ 1 DOSE, DAY 1 OF REGIMEN 1 DOSE, DAY 4 OF REGIMEN
     Route: 058
     Dates: start: 20110603, end: 20110603

REACTIONS (1)
  - ERYTHEMA [None]
